FAERS Safety Report 5649321-5 (Version None)
Quarter: 2008Q1

REPORT INFORMATION
  Report Type: 
  Country: None (occurrence: None)
  Receive Date: 20080304
  Receipt Date: 20071211
  Transmission Date: 20080703
  Serious: No
  Sender: FDA-Public Use
  Company Number: US-BAYER-200716677NA

PATIENT
  Age: 38 Year
  Sex: Male
  Weight: 101 kg

DRUGS (1)
  1. MAGNEVIST [Suspect]
     Indication: NUCLEAR MAGNETIC RESONANCE IMAGING
     Dosage: UNIT DOSE: 21 ML
     Route: 042
     Dates: start: 20071129, end: 20071129

REACTIONS (2)
  - NAUSEA [None]
  - VOMITING [None]
